FAERS Safety Report 14322148 (Version 5)
Quarter: 2018Q1

REPORT INFORMATION
  Report Type: Spontaneous
  Country: DE (occurrence: DE)
  Receive Date: 20171225
  Receipt Date: 20180301
  Transmission Date: 20180509
  Serious: Yes (Other)
  Sender: FDA-Public Use
  Company Number: DE-AUROBINDO-AUR-APL-2017-46952

PATIENT
  Age: 36 Year
  Sex: Female
  Weight: 84 kg

DRUGS (5)
  1. TIABENDAZOLE [Concomitant]
     Active Substance: THIABENDAZOLE
     Indication: PSORIASIS
     Dosage: AS NECESSARY
     Route: 065
     Dates: start: 20161122, end: 20170110
  2. AMOXICILLIN+CLAVULANIC ACID FILM-COATED TABLETS [Suspect]
     Active Substance: AMOXICILLIN\CLAVULANIC ACID
     Indication: BRONCHITIS
     Dosage: 1 G, TWO TIMES A DAY
     Route: 048
     Dates: start: 20170113, end: 20170114
  3. ENBREL [Suspect]
     Active Substance: ETANERCEPT
     Indication: PSORIASIS
     Dosage: 50 MG, EVERY WEEK
     Route: 065
     Dates: start: 20160913, end: 20170113
  4. BETAMETHASON                       /00008501/ [Concomitant]
     Active Substance: BETAMETHASONE
     Indication: PSORIASIS
     Dosage: UNK UNK, AS NECESSARY
     Route: 065
     Dates: start: 20161122, end: 20170115
  5. ENBREL [Suspect]
     Active Substance: ETANERCEPT
     Dosage: UNK ()
     Route: 065

REACTIONS (4)
  - Drug hypersensitivity [Recovered/Resolved]
  - Bronchitis [Recovered/Resolved]
  - Rash maculo-papular [Recovered/Resolved]
  - Rash generalised [Recovered/Resolved]

NARRATIVE: CASE EVENT DATE: 20170113
